FAERS Safety Report 10106897 (Version 2)
Quarter: 2014Q2

REPORT INFORMATION
  Report Type: Other
  Country: US (occurrence: US)
  Receive Date: 20140424
  Receipt Date: 20140618
  Transmission Date: 20141212
  Serious: Yes (Hospitalization, Other)
  Sender: FDA-Public Use
  Company Number: US-GSKPPD-2014GSK001630

PATIENT
  Age: 64 Year
  Sex: Male

DRUGS (8)
  1. AVANDIA [Suspect]
     Indication: DIABETES MELLITUS
     Route: 048
     Dates: start: 20020404, end: 20100614
  2. ECOTRIN [Concomitant]
     Route: 048
  3. LIPITOR [Concomitant]
     Route: 048
  4. NORVASC [Concomitant]
     Route: 048
  5. TOPROL XL [Concomitant]
     Route: 048
  6. TOPROL XL [Concomitant]
     Route: 048
  7. DIGOXIN [Concomitant]
     Route: 048
  8. DIGOXIN [Concomitant]
     Route: 048

REACTIONS (2)
  - Myocardial infarction [Recovered/Resolved]
  - Angina unstable [Recovered/Resolved]
